FAERS Safety Report 6963367-6 (Version None)
Quarter: 2010Q3

REPORT INFORMATION
  Report Type: 
  Country: None (occurrence: None)
  Receive Date: 20100902
  Receipt Date: 20100825
  Transmission Date: 20110219
  Serious: Yes (Hospitalization)
  Sender: FDA-Public Use
  Company Number: A0861552A

PATIENT
  Age: 67 Year
  Sex: Female

DRUGS (7)
  1. AVANDIA [Suspect]
     Indication: DIABETES MELLITUS
     Dosage: 4MG PER DAY
     Dates: start: 20051001, end: 20070101
  2. NITROGLYCERIN [Concomitant]
     Route: 060
  3. DIOVAN [Concomitant]
  4. NEXIUM [Concomitant]
  5. LIPITOR [Concomitant]
  6. NORVASC [Concomitant]
  7. ASPIRIN [Concomitant]

REACTIONS (3)
  - ATRIOVENTRICULAR BLOCK COMPLETE [None]
  - MYOCARDIAL INFARCTION [None]
  - MYOCARDIAL ISCHAEMIA [None]
